FAERS Safety Report 5351283-5 (Version None)
Quarter: 2007Q2

REPORT INFORMATION
  Report Type: 
  Country: None (occurrence: None)
  Receive Date: 20070608
  Receipt Date: 20070601
  Transmission Date: 20071010
  Serious: Yes (Other)
  Sender: FDA-Public Use
  Company Number: FR-AMGEN-UK224388

PATIENT
  Sex: Female

DRUGS (4)
  1. MIMPARA [Suspect]
     Indication: PARATHYROID TUMOUR MALIGNANT
     Route: 048
     Dates: start: 20070412
  2. METFORMIN HCL [Concomitant]
     Route: 048
  3. ACTOS [Concomitant]
     Route: 048
     Dates: start: 20070323
  4. ESCITALOPRAM OXALATE [Concomitant]
     Dates: start: 20070323

REACTIONS (3)
  - DYSPEPSIA [None]
  - NAUSEA [None]
  - VOMITING [None]
